FAERS Safety Report 16563606 (Version 1)
Quarter: 2019Q3

REPORT INFORMATION
  Report Type: Spontaneous
  Country: CA (occurrence: CA)
  Receive Date: 20190712
  Receipt Date: 20190712
  Transmission Date: 20191004
  Serious: Yes (Other)
  Sender: FDA-Public Use
  Company Number: CA-AUROBINDO-AUR-APL-2019-039255

PATIENT

DRUGS (3)
  1. VENLAFAXINE XR EXTENDED RELEASE CAPSULE [Suspect]
     Active Substance: VENLAFAXINE HYDROCHLORIDE
     Indication: PRODUCT USED FOR UNKNOWN INDICATION
     Dosage: 30 MILLIGRAM
     Route: 065
  2. TRINTELLIX [Concomitant]
     Active Substance: VORTIOXETINE HYDROBROMIDE
     Indication: PRODUCT USED FOR UNKNOWN INDICATION
     Dosage: UNK
     Route: 065
  3. VENLAFAXINE XR EXTENDED RELEASE CAPSULE [Suspect]
     Active Substance: VENLAFAXINE HYDROCHLORIDE
     Dosage: 20 MILLIGRAM
     Route: 065

REACTIONS (11)
  - Depressive symptom [Recovered/Resolved]
  - Seizure [Recovered/Resolved]
  - Tremor [Recovered/Resolved]
  - Anxiety [Recovered/Resolved]
  - Myalgia [Recovered/Resolved]
  - Product formulation issue [Recovered/Resolved]
  - Influenza like illness [Recovered/Resolved]
  - Panic attack [Recovered/Resolved]
  - Insomnia [Recovered/Resolved]
  - Withdrawal syndrome [Recovered/Resolved]
  - Product substitution issue [Recovered/Resolved]
